FAERS Safety Report 15307985 (Version 1)
Quarter: 2018Q3

REPORT INFORMATION
  Report Type: Spontaneous
  Country: GB (occurrence: GB)
  Receive Date: 20180822
  Receipt Date: 20180822
  Transmission Date: 20181010
  Serious: Yes (Hospitalization, Other)
  Sender: FDA-Public Use
  Company Number: GB-SHIRE-GB201830753

PATIENT

DRUGS (8)
  1. PENTASA [Suspect]
     Active Substance: MESALAMINE
     Dosage: 1600 MG, 1X/DAY:QD (800 MG BID)
     Route: 065
  2. AZATHIOPRINE. [Suspect]
     Active Substance: AZATHIOPRINE
     Indication: IMMUNOSUPPRESSION
     Dosage: LOWER DOSE
     Route: 065
  3. PREDNISOLONE. [Concomitant]
     Active Substance: PREDNISOLONE
     Dosage: 40 MG, 1X/DAY:QD
     Route: 065
  4. PREDNISOLONE. [Concomitant]
     Active Substance: PREDNISOLONE
     Dosage: LOW DOSE
     Route: 065
  5. PENTASA [Suspect]
     Active Substance: MESALAMINE
     Indication: COLITIS
     Dosage: 2.4 G, 1X/DAY:QD
     Route: 065
  6. PENTASA [Suspect]
     Active Substance: MESALAMINE
     Dosage: 4.8 G, 1X/DAY:QD (2.4 G BID)
     Route: 065
  7. PREDNISOLONE. [Concomitant]
     Active Substance: PREDNISOLONE
     Indication: IMMUNOSUPPRESSION
     Dosage: 20 MG, 1X/DAY:QD
     Route: 065
  8. TACROLIMUS. [Concomitant]
     Active Substance: TACROLIMUS
     Indication: IMMUNOSUPPRESSION
     Route: 065

REACTIONS (8)
  - Iron deficiency anaemia [Recovering/Resolving]
  - Hepatic failure [Recovering/Resolving]
  - Diarrhoea haemorrhagic [Recovering/Resolving]
  - Haematochezia [Recovering/Resolving]
  - Weight decreased [Recovering/Resolving]
  - Neutropenia [Recovering/Resolving]
  - Drug ineffective [Unknown]
  - Cytomegalovirus viraemia [Recovering/Resolving]
